FAERS Safety Report 10964690 (Version 3)
Quarter: 2015Q2

REPORT INFORMATION
  Report Type: Report from Study
  Country: CA (occurrence: CA)
  Receive Date: 20150329
  Receipt Date: 20150617
  Transmission Date: 20150821
  Serious: Yes (Hospitalization, Other)
  Sender: FDA-Public Use
  Company Number: CA-ROCHE-1137540

PATIENT
  Age: 54 Year
  Sex: Female
  Weight: 56.75 kg

DRUGS (11)
  1. GRAVOL [Concomitant]
     Active Substance: DIMENHYDRINATE
  2. ACTEMRA [Suspect]
     Active Substance: TOCILIZUMAB
     Route: 042
     Dates: start: 20110404
  3. XARELTO [Suspect]
     Active Substance: RIVAROXABAN
     Indication: THROMBOSIS PROPHYLAXIS
     Route: 065
  4. ASA [Concomitant]
     Active Substance: ASPIRIN
  5. ACTEMRA [Suspect]
     Active Substance: TOCILIZUMAB
     Indication: RHEUMATOID ARTHRITIS
     Route: 042
     Dates: start: 20110131
  6. RALIVIA [Concomitant]
     Active Substance: TRAMADOL HYDROCHLORIDE
  7. FOLIC ACID. [Concomitant]
     Active Substance: FOLIC ACID
  8. ACTEMRA [Suspect]
     Active Substance: TOCILIZUMAB
     Route: 042
     Dates: start: 20110404
  9. TYLENOL WITH CODEINE [Concomitant]
     Active Substance: ACETAMINOPHEN\CODEINE PHOSPHATE
  10. METHOTREXATE [Concomitant]
     Active Substance: METHOTREXATE
  11. CRESTOR [Concomitant]
     Active Substance: ROSUVASTATIN CALCIUM

REACTIONS (7)
  - Haemorrhage [Recovered/Resolved]
  - Hypotension [Unknown]
  - Insomnia [Not Recovered/Not Resolved]
  - Device dislocation [Recovered/Resolved]
  - Rheumatoid arthritis [Unknown]
  - Nasal congestion [Recovered/Resolved]
  - Rheumatoid arthritis [Not Recovered/Not Resolved]

NARRATIVE: CASE EVENT DATE: 201208
